FAERS Safety Report 24112705 (Version 1)
Quarter: 2024Q3

REPORT INFORMATION
  Report Type: Spontaneous
  Country: GH (occurrence: GH)
  Receive Date: 20240719
  Receipt Date: 20240719
  Transmission Date: 20241016
  Serious: Yes (Hospitalization, Other)
  Sender: NOVARTIS
  Company Number: GH-002147023-NVSC2024GH148275

PATIENT
  Age: 10 Year
  Sex: Male
  Weight: 51 kg

DRUGS (1)
  1. COARTEM [Suspect]
     Active Substance: ARTEMETHER\LUMEFANTRINE
     Indication: Malaria
     Dosage: UNK UNK, BID (80/480 MG)
     Route: 048
     Dates: start: 20240715, end: 20240715

REACTIONS (2)
  - Hallucination, visual [Recovered/Resolved]
  - Abnormal behaviour [Recovered/Resolved]

NARRATIVE: CASE EVENT DATE: 20240715
